FAERS Safety Report 7772798-6 (Version None)
Quarter: 2011Q3

REPORT INFORMATION
  Report Type: 
  Country: None (occurrence: None)
  Receive Date: 20110922
  Receipt Date: 20100311
  Transmission Date: 20111222
  Serious: Yes (Other)
  Sender: FDA-Public Use
  Company Number: US-ASTRAZENECA-2009UW21213

PATIENT
  Age: 52 Year
  Sex: Male

DRUGS (5)
  1. BUSPIRONE HCL [Concomitant]
     Route: 048
     Dates: start: 20020506
  2. SEROQUEL [Suspect]
     Dosage: AT NIGHT
     Route: 048
     Dates: start: 20020506
  3. HALOPERIDOL [Concomitant]
     Route: 048
     Dates: start: 20020506
  4. DEPAKOTE [Concomitant]
     Dosage: 500 MG ONE AM AND 2 PM
     Route: 048
     Dates: start: 20020506
  5. TRILEPTAL [Concomitant]
     Dosage: 150 MG 1 TABLET QAM AND 2 QHS
     Route: 048
     Dates: start: 20020506

REACTIONS (4)
  - KETOACIDOSIS [None]
  - TYPE 2 DIABETES MELLITUS [None]
  - PANCREATITIS [None]
  - DIABETES MELLITUS [None]
